FAERS Safety Report 17778671 (Version 2)
Quarter: 2020Q4

REPORT INFORMATION
  Report Type: Other
  Country: CA (occurrence: CA)
  Receive Date: 20200513
  Receipt Date: 20201009
  Transmission Date: 20210113
  Serious: Yes (Hospitalization, Other)
  Sender: FDA-Public Use
  Company Number: CA-ROCHE-2599405

PATIENT
  Age: 35 Year
  Sex: Female

DRUGS (4)
  1. XOLAIR [Suspect]
     Active Substance: OMALIZUMAB
     Route: 065
  2. XOLAIR [Suspect]
     Active Substance: OMALIZUMAB
     Route: 058
     Dates: start: 20200311
  3. XOLAIR [Suspect]
     Active Substance: OMALIZUMAB
     Indication: CHRONIC SPONTANEOUS URTICARIA
     Route: 058
     Dates: start: 20200213
  4. RUPALL [Concomitant]
     Active Substance: RUPATADINE FUMARATE
     Indication: HYPERSENSITIVITY
     Dosage: 4 DF, QD
     Route: 048
     Dates: start: 201912

REACTIONS (3)
  - Productive cough [Recovered/Resolved]
  - Urticaria [Unknown]
  - Weight increased [Unknown]

NARRATIVE: CASE EVENT DATE: 20200320
